FAERS Safety Report 10652398 (Version 3)
Quarter: 2015Q1

REPORT INFORMATION
  Report Type: Report from Study
  Country: US (occurrence: US)
  Receive Date: 20141215
  Receipt Date: 20150109
  Transmission Date: 20150720
  Serious: Yes (Other)
  Sender: FDA-Public Use
  Company Number: US-AMGEN INC.-USASL2014096749

PATIENT
  Age: 51 Year
  Sex: Female

DRUGS (1)
  1. ENBREL [Suspect]
     Active Substance: ETANERCEPT
     Indication: PSORIASIS
     Dosage: 50 MG, 2 TIMES/WK
     Route: 058
     Dates: start: 20141201

REACTIONS (4)
  - Cardiac failure congestive [Unknown]
  - Peripheral swelling [Unknown]
  - Joint swelling [Unknown]
  - Body tinea [Not Recovered/Not Resolved]

NARRATIVE: CASE EVENT DATE: 20141201
